FAERS Safety Report 9695672 (Version 1)
Quarter: 2013Q4

REPORT INFORMATION
  Report Type: Spontaneous
  Country: GB (occurrence: GB)
  Receive Date: 20131119
  Receipt Date: 20131119
  Transmission Date: 20140711
  Serious: Yes (Other)
  Sender: FDA-Public Use
  Company Number: GB-009507513-1311GBR006231

PATIENT
  Age: 32 Year
  Sex: Female
  Weight: 80.73 kg

DRUGS (3)
  1. NASONEX [Suspect]
     Indication: NASAL CONGESTION
     Dosage: 2 DF, QD
     Route: 045
     Dates: start: 20130624, end: 20131007
  2. NASONEX [Suspect]
     Indication: RHINITIS
  3. COUGH, COLD, AND FLU THERAPIES (UNSPECIFIED) [Concomitant]

REACTIONS (7)
  - Anxiety [Recovered/Resolved with Sequelae]
  - Dry mouth [Recovered/Resolved]
  - Pain in jaw [Recovered/Resolved]
  - Mood swings [Recovered/Resolved]
  - Palpitations [Recovering/Resolving]
  - Dyspnoea [Recovered/Resolved]
  - Paraesthesia [Not Recovered/Not Resolved]
